FAERS Safety Report 5387252-9 (Version None)
Quarter: 2007Q3

REPORT INFORMATION
  Report Type: 
  Country: None (occurrence: None)
  Receive Date: 20070716
  Receipt Date: 20070705
  Transmission Date: 20080115
  Serious: Yes (Other)
  Sender: FDA-Public Use
  Company Number: HQWYE921206JUL07

PATIENT
  Sex: Male
  Weight: 74.91 kg

DRUGS (2)
  1. EFFEXOR XR [Suspect]
     Indication: DEPRESSION
     Route: 048
     Dates: start: 20061001, end: 20070601
  2. PRILOSEC [Concomitant]
     Dosage: UNKNOWN

REACTIONS (13)
  - ABNORMAL DREAMS [None]
  - CONSTIPATION [None]
  - DISTURBANCE IN ATTENTION [None]
  - DIZZINESS [None]
  - DRUG WITHDRAWAL SYNDROME [None]
  - HYPERHIDROSIS [None]
  - INFLUENZA LIKE ILLNESS [None]
  - INSOMNIA [None]
  - MOOD SWINGS [None]
  - PAIN IN EXTREMITY [None]
  - POLLAKIURIA [None]
  - SUICIDAL IDEATION [None]
  - WEIGHT INCREASED [None]
